FAERS Safety Report 6709316-7 (Version None)
Quarter: 2010Q2

REPORT INFORMATION
  Report Type: 
  Country: None (occurrence: None)
  Receive Date: 20100504
  Receipt Date: 20100422
  Transmission Date: 20101027
  Serious: Yes (Other)
  Sender: FDA-Public Use
  Company Number: US-WYE-H14773710

PATIENT
  Sex: Female

DRUGS (5)
  1. IBUPROFEN (ADVIL) [Suspect]
     Indication: INFLUENZA LIKE ILLNESS
     Dosage: 8 ADVIL AT A TIME, FREQUENCY UNKNOWN
     Route: 065
     Dates: start: 20080101
  2. BETASERON [Suspect]
     Indication: RELAPSING-REMITTING MULTIPLE SCLEROSIS
     Dosage: 2 MIU EVERY OTHER DAY
     Route: 058
     Dates: start: 20080325, end: 20080101
  3. BETASERON [Suspect]
     Dosage: 4 MIU EVERY OTHER DAY
     Route: 058
     Dates: start: 20080408, end: 20080101
  4. BETASERON [Suspect]
     Dosage: 8 MIU EVERY OTHER DAY
     Route: 058
     Dates: end: 20080512
  5. BETASERON [Suspect]
     Dosage: 2 MIU EVERY OTHER DAY
     Route: 058
     Dates: start: 20100412

REACTIONS (2)
  - OVERDOSE [None]
  - WHITE BLOOD CELL COUNT INCREASED [None]
